FAERS Safety Report 4305815-6 (Version None)
Quarter: 2004Q1

REPORT INFORMATION
  Report Type: 
  Country: None (occurrence: None)
  Receive Date: 20040225
  Receipt Date: 20040220
  Transmission Date: 20041129
  Serious: Yes (Other)
  Sender: FDA-Public Use
  Company Number: US-JNJFOC-20030805792

PATIENT
  Age: 30 Year
  Sex: Female
  Weight: 96.843 kg

DRUGS (3)
  1. ORTHO TRI-CYCLEN LO [Suspect]
     Indication: CONTRACEPTION
     Dosage: 1 DOSE (S), 1 IN 1 DAY, ORAL
     Route: 048
  2. AVANDIA [Concomitant]
  3. MULTIVITAMIN [Concomitant]

REACTIONS (11)
  - BACK PAIN [None]
  - BLOOD PRESSURE DIASTOLIC INCREASED [None]
  - CARDIAC FLUTTER [None]
  - CHEST PAIN [None]
  - COUGH [None]
  - DIZZINESS [None]
  - NAUSEA [None]
  - PALPITATIONS [None]
  - VENTRICULAR EXTRASYSTOLES [None]
  - VISION BLURRED [None]
  - VOMITING [None]
